FAERS Safety Report 7201951 (Version 1)
Quarter: 2020Q3

REPORT INFORMATION
  Report Type: Report from Study
  Country: US (occurrence: US)
  Receive Date: 20091207
  Receipt Date: 20091207
  Transmission Date: 20201104
  Serious: Yes (Death, Other)
  Sender: FDA-Public Use
  Company Number: US-ROCHE-671849

PATIENT
  Age: 65 Year
  Sex: Female
  Weight: 65.8 kg

DRUGS (2)
  1. IBANDRONIC ACID. [Suspect]
     Active Substance: IBANDRONIC ACID
     Indication: OSTEOPOROSIS PROPHYLAXIS
     Route: 048
     Dates: start: 2006
  2. FOSAMAX [Suspect]
     Active Substance: ALENDRONATE SODIUM
     Indication: PRODUCT USED FOR UNKNOWN INDICATION
     Route: 048
     Dates: start: 2006

REACTIONS (3)
  - Metastatic neoplasm [Unknown]
  - Death [Fatal]
  - Bone cancer [Unknown]

NARRATIVE: CASE EVENT DATE: 20081115
